FAERS Safety Report 9439943 (Version 1)
Quarter: 2013Q3

REPORT INFORMATION
  Report Type: Spontaneous
  Country: US (occurrence: US)
  Receive Date: 20130805
  Receipt Date: 20130805
  Transmission Date: 20140515
  Serious: Yes (Hospitalization, Other)
  Sender: FDA-Public Use
  Company Number: US-MERCK-1308USA000699

PATIENT
  Age: 53 Year
  Sex: Female
  Weight: 86.17 kg

DRUGS (6)
  1. SAPHRIS [Suspect]
     Dosage: UNK
     Route: 048
  2. SEROQUEL XR [Concomitant]
     Dosage: UNK
  3. OXYCODONE HYDROCHLORIDE [Concomitant]
     Dosage: UNK
  4. NEXIUM [Concomitant]
     Dosage: UNK
  5. LORTAB [Concomitant]
     Dosage: UNK
  6. XANAX [Concomitant]
     Dosage: UNK

REACTIONS (8)
  - Language disorder [Unknown]
  - Memory impairment [Unknown]
  - Amnesia [Unknown]
  - Agnosia [Unknown]
  - Dysphemia [Unknown]
  - Activities of daily living impaired [Unknown]
  - Aphasia [Unknown]
  - Tremor [Unknown]
